FAERS Safety Report 7889371 (Version 4)
Quarter: 2013Q1

REPORT INFORMATION
  Report Type: Report from Study
  Country: CA (occurrence: CA)
  Receive Date: 20110407
  Receipt Date: 20130128
  Transmission Date: 20140127
  Serious: Yes (Other)
  Sender: FDA-Public Use
  Company Number: PHHY2011CA05626

PATIENT
  Age: 88 Year
  Sex: Female

DRUGS (16)
  1. ACLASTA/ZOLEDRONATE [Suspect]
     Indication: OSTEOPOROSIS
     Dosage: 5 MG, UNK
     Dates: start: 20100310
  2. ACLASTA/ZOLEDRONATE [Suspect]
     Dosage: 5 MG, UNK
     Route: 042
     Dates: start: 20110325
  3. ACLASTA/ZOLEDRONATE [Suspect]
     Dosage: 5 MG, UNK
     Route: 042
     Dates: start: 20120703
  4. VITAMIN D [Concomitant]
     Dosage: 400 IU, BID
     Dates: start: 19661223
  5. CALCIUM [Concomitant]
     Dosage: 500 MG, BID
     Dates: start: 19961223
  6. CELEXA [Concomitant]
     Dosage: 20 MG, UNK
  7. FENTANYL [Concomitant]
     Dosage: 12 UG/HR, EVERY 03 DAYS
  8. DILTIAZEM [Concomitant]
     Dosage: 240 MG, DAILY
  9. STATEX [Concomitant]
     Dosage: ? TO 1 TAB EVERY 4H PRN
  10. D-TABS [Concomitant]
     Dosage: 1 DF EVERY WEEK
  11. ACETAMINOPHEN [Concomitant]
     Dosage: 02 TABLETS EVERY 4H PRN
  12. ASA [Concomitant]
     Dosage: 1 DF, DAILY
  13. CELESTA [Concomitant]
  14. VITAMIN B12 [Concomitant]
     Dosage: 1 DF DAILY
  15. PREMARIN [Concomitant]
     Dosage: 01 APPLICATION DAILY
  16. COLACE [Concomitant]
     Dosage: 1-2 TABLETS BID PRN

REACTIONS (8)
  - Hip fracture [Unknown]
  - Fall [Unknown]
  - Femur fracture [Unknown]
  - Spinal disorder [Unknown]
  - Orthostatic hypotension [Unknown]
  - Bone loss [Unknown]
  - Bone density decreased [Not Recovered/Not Resolved]
  - Drug ineffective [Not Recovered/Not Resolved]
